FAERS Safety Report 5720157-X (Version None)
Quarter: 2008Q2

REPORT INFORMATION
  Report Type: 
  Country: None (occurrence: None)
  Receive Date: 20080428
  Receipt Date: 20070709
  Transmission Date: 20081010
  Serious: No
  Sender: FDA-Public Use
  Company Number: US-AMGEN-US232882

PATIENT
  Sex: Female

DRUGS (3)
  1. SENSIPAR [Suspect]
     Indication: PARATHYROID TUMOUR MALIGNANT
     Dates: start: 20070201, end: 20070201
  2. DENOSUMAB - COMPARATOR (FOSAMAX) [Concomitant]
     Route: 048
  3. AMBIEN [Concomitant]
     Route: 048

REACTIONS (3)
  - CONSTIPATION [None]
  - MYALGIA [None]
  - WEIGHT INCREASED [None]
